FAERS Safety Report 6413807-6 (Version None)
Quarter: 2009Q4

REPORT INFORMATION
  Report Type: 
  Country: None (occurrence: None)
  Receive Date: 20091022
  Receipt Date: 20091022
  Transmission Date: 20100525
  Serious: Yes (Disabling)
  Sender: FDA-Public Use
  Company Number: None

PATIENT
  Age: 57 Year
  Sex: Female
  Weight: 121.564 kg

DRUGS (4)
  1. PRAVASTATIN [Suspect]
     Indication: BLOOD CHOLESTEROL ABNORMAL
     Dosage: 20 MG. ONCE DAILY ORAL
     Route: 048
     Dates: start: 20080101, end: 20090101
  2. LISINOPRIL [Concomitant]
  3. HYDROCHLORIZIDE [Concomitant]
  4. METFORMIN [Concomitant]

REACTIONS (3)
  - FALL [None]
  - PAIN IN EXTREMITY [None]
  - SYNCOPE [None]
